FAERS Safety Report 13027918 (Version 1)
Quarter: 2016Q4

REPORT INFORMATION
  Report Type: Spontaneous
  Country: US (occurrence: US)
  Receive Date: 20161214
  Receipt Date: 20161214
  Transmission Date: 20170207
  Serious: Yes (Hospitalization, Other)
  Sender: FDA-Public Use
  Company Number: US-ELI_LILLY_AND_COMPANY-US201612004006

PATIENT
  Age: 60 Year
  Sex: Female

DRUGS (3)
  1. ZOFRAN [Suspect]
     Active Substance: ONDANSETRON HYDROCHLORIDE
     Dosage: UNK, UNKNOWN
     Route: 065
  2. GEMCITABINE HYDROCHLORIDE. [Suspect]
     Active Substance: GEMCITABINE HYDROCHLORIDE
     Indication: BLADDER TRANSITIONAL CELL CARCINOMA STAGE IV
     Dosage: 1000 MG/M2, CYCLICAL
     Route: 065
     Dates: start: 20040831
  3. CISPLATIN. [Suspect]
     Active Substance: CISPLATIN
     Indication: BLADDER TRANSITIONAL CELL CARCINOMA STAGE IV
     Dosage: 70 MG/M2, CYCLICAL
     Route: 065
     Dates: start: 20040831

REACTIONS (5)
  - Nausea [Unknown]
  - Angioedema [Unknown]
  - Phobia [Unknown]
  - Drug hypersensitivity [Unknown]
  - Vomiting [Unknown]
